FAERS Safety Report 10038507 (Version 2)
Quarter: 2014Q2

REPORT INFORMATION
  Report Type: Spontaneous
  Country: BR (occurrence: BR)
  Receive Date: 20140326
  Receipt Date: 20140507
  Transmission Date: 20141212
  Serious: Yes (Other)
  Sender: FDA-Public Use
  Company Number: PHHY2014BR034885

PATIENT
  Sex: Female
  Weight: 56 kg

DRUGS (5)
  1. ESTRADOT [Suspect]
     Indication: HORMONE REPLACEMENT THERAPY
     Dosage: 25 UG, 2 ADHESIVES PER WEEK
     Route: 062
  2. ESTRADOT [Suspect]
     Dosage: 50 UG, 2 ADHESIVES PER WEEK
     Route: 062
  3. ESTRADOT [Suspect]
     Dosage: 100 UG, 2 ADHESIVES PER WEEK
     Route: 062
  4. ESTRADOT [Suspect]
     Dosage: 50 UG, 2 ADHESIVES PER WEEK
     Route: 062
  5. ESTRADOT [Suspect]
     Dosage: 50 UG, 2 ADHESIVES PER WEEK
     Route: 062

REACTIONS (19)
  - Bipolar disorder [Recovering/Resolving]
  - Uterine haemorrhage [Recovered/Resolved]
  - Pain in extremity [Recovered/Resolved]
  - Anxiety [Not Recovered/Not Resolved]
  - Insomnia [Not Recovered/Not Resolved]
  - Agitation [Not Recovered/Not Resolved]
  - Malaise [Recovering/Resolving]
  - Photosensitivity reaction [Recovering/Resolving]
  - Hyperhidrosis [Recovering/Resolving]
  - Emotional disorder [Recovering/Resolving]
  - Sleep disorder [Recovering/Resolving]
  - Neck pain [Recovering/Resolving]
  - Hypophagia [Unknown]
  - Oedema peripheral [Recovering/Resolving]
  - Abdominal pain [Recovering/Resolving]
  - Erythema [Recovering/Resolving]
  - Headache [Recovering/Resolving]
  - Nausea [Recovering/Resolving]
  - Drug ineffective [Unknown]
